FAERS Safety Report 6425099-2 (Version None)
Quarter: 2009Q4

REPORT INFORMATION
  Report Type: 
  Country: None (occurrence: None)
  Receive Date: 20091103
  Receipt Date: 20091023
  Transmission Date: 20100525
  Serious: Yes (Other)
  Sender: FDA-Public Use
  Company Number: DE-PFIZER INC-2009287640

PATIENT
  Age: 48 Year
  Sex: Female

DRUGS (1)
  1. DEPO-CLINOVIR [Suspect]
     Dosage: 150 MG, EVERY 3 MONTHS
     Route: 030
     Dates: start: 20020101

REACTIONS (1)
  - BRONCHOSPASM [None]
